FAERS Safety Report 19633059 (Version 1)
Quarter: 2021Q3

REPORT INFORMATION
  Report Type: Spontaneous
  Country: US (occurrence: US)
  Receive Date: 20210729
  Receipt Date: 20210729
  Transmission Date: 20211014
  Serious: No
  Sender: FDA-Public Use
  Company Number: US-MYLANLABS-2021M1036134

PATIENT
  Sex: Female

DRUGS (1)
  1. FOSPHENYTOIN NA INJECTION USP 75 MG/ML?2 ML+10ML VIALS [Suspect]
     Active Substance: FOSPHENYTOIN SODIUM
     Indication: PRODUCT USED FOR UNKNOWN INDICATION
     Dosage: 50 MILLIGRAM PER MILLILITRE
     Route: 030

REACTIONS (1)
  - Product storage error [Not Recovered/Not Resolved]
